FAERS Safety Report 5497976-0 (Version None)
Quarter: 2007Q4

REPORT INFORMATION
  Report Type: 
  Country: None (occurrence: None)
  Receive Date: 20071025
  Receipt Date: 20071015
  Transmission Date: 20080405
  Serious: Yes (Hospitalization)
  Sender: FDA-Public Use
  Company Number: JP-ASTRAZENECA-2005SE02965

PATIENT
  Age: 58 Year
  Sex: Male

DRUGS (3)
  1. BLOPRESS [Suspect]
     Indication: MESANGIOPROLIFERATIVE GLOMERULONEPHRITIS
     Route: 048
     Dates: end: 20050501
  2. COMELIAN [Concomitant]
     Route: 048
  3. DIPYRIDAMOLE [Concomitant]
     Indication: MESANGIOPROLIFERATIVE GLOMERULONEPHRITIS
     Route: 065

REACTIONS (1)
  - INTERSTITIAL LUNG DISEASE [None]
